FAERS Safety Report 4822828-6 (Version None)
Quarter: 2005Q4

REPORT INFORMATION
  Report Type: 
  Country: None (occurrence: None)
  Receive Date: 20051108
  Receipt Date: 20050809
  Transmission Date: 20060501
  Serious: Yes (Death, Life-Threatening, Hospitalization)
  Sender: FDA-Public Use
  Company Number: JP-BRISTOL-MYERS SQUIBB COMPANY-13077623

PATIENT
  Age: 36 Year
  Sex: Male

DRUGS (3)
  1. ENDOXAN [Suspect]
     Indication: BONE MARROW CONDITIONING REGIMEN
     Route: 042
     Dates: start: 20050629, end: 20050630
  2. CYTARABINE [Suspect]
     Indication: BONE MARROW CONDITIONING REGIMEN
     Dates: start: 20050725, end: 20050731
  3. FLUDARA [Suspect]
     Indication: BONE MARROW CONDITIONING REGIMEN
     Dates: start: 20050725, end: 20050728

REACTIONS (4)
  - CARDIAC FAILURE [None]
  - HEPATIC FAILURE [None]
  - PNEUMONIA [None]
  - RENAL FAILURE [None]
